FAERS Safety Report 11758857 (Version 1)
Quarter: 2015Q4

REPORT INFORMATION
  Report Type: Spontaneous
  Country: US (occurrence: None)
  Receive Date: 20151119
  Receipt Date: 20151119
  Transmission Date: 20160304
  Serious: No
  Sender: FDA-Public Use
  Company Number: None

PATIENT
  Age: 40 Year
  Sex: Female
  Weight: 77.11 kg

DRUGS (1)
  1. PROTRIPTYLINE [Suspect]
     Active Substance: PROTRIPTYLINE
     Indication: COUGH
     Dosage: 1 PILL
     Route: 048

REACTIONS (1)
  - Pollakiuria [None]
